FAERS Safety Report 7925270-4 (Version None)
Quarter: 2011Q4

REPORT INFORMATION
  Report Type: 
  Country: None (occurrence: None)
  Receive Date: 20111118
  Receipt Date: 20110404
  Transmission Date: 20120403
  Serious: No
  Sender: FDA-Public Use
  Company Number: US-AMGEN-USASP2011017765

PATIENT
  Age: 64 Year
  Sex: Female

DRUGS (12)
  1. ENBREL [Suspect]
     Indication: PRODUCT USED FOR UNKNOWN INDICATION
     Dosage: 50 MG, QWK
  2. VITAMIN C                          /00008001/ [Concomitant]
     Dosage: 500 MG, UNK
  3. CYMBALTA [Concomitant]
     Dosage: 20 MG, UNK
  4. CALCIUM [Concomitant]
     Dosage: 600 MG, UNK
  5. SYNTHROID [Concomitant]
  6. PLAQUENIL [Concomitant]
     Dosage: 200 MG, UNK
  7. MULTIVITAMIN                       /00097801/ [Concomitant]
  8. CLONAZEPAM [Concomitant]
     Dosage: 1 MG, UNK
  9. VITAMIN D [Concomitant]
     Dosage: 2000 MG, UNK
  10. CELEBREX [Concomitant]
     Dosage: 100 MG, UNK
  11. PREDNISONE TAB [Concomitant]
     Dosage: 1 MG, UNK
  12. ZINC [Concomitant]
     Dosage: 50 MG, UNK

REACTIONS (2)
  - INJECTION SITE REACTION [None]
  - INJECTION SITE HAEMATOMA [None]
